FAERS Safety Report 8082907-X (Version None)
Quarter: 2012Q1

REPORT INFORMATION
  Report Type: 
  Country: None (occurrence: None)
  Receive Date: 20120127
  Receipt Date: 20110217
  Transmission Date: 20120608
  Serious: No
  Sender: FDA-Public Use
  Company Number: US-ABBOTT-11P-163-0702546-00

PATIENT
  Sex: Female

DRUGS (3)
  1. METHOTREXATE [Concomitant]
     Indication: RHEUMATOID ARTHRITIS
     Dosage: 25 MG WEEKLY
     Route: 048
  2. HUMIRA [Suspect]
     Indication: RHEUMATOID ARTHRITIS
     Route: 058
     Dates: start: 20110202
  3. PREDNISONE TAB [Concomitant]
     Indication: CONDITION AGGRAVATED
     Dosage: AS NEEDED-NONE IN LAST TWO WEEKS
     Route: 048

REACTIONS (7)
  - FEELING HOT [None]
  - INJECTION SITE PAIN [None]
  - HYPERHIDROSIS [None]
  - DIZZINESS [None]
  - PALLOR [None]
  - SYNCOPE [None]
  - NAUSEA [None]
